FAERS Safety Report 8798133 (Version 3)
Quarter: 2012Q4

REPORT INFORMATION
  Report Type: 
  Country: ZA (occurrence: ZA)
  Receive Date: 20120920
  Receipt Date: 20121010
  Transmission Date: 20130627
  Serious: Yes (Other)
  Sender: FDA-Public Use
  Company Number: ZA-B.I. PHARMACEUTICALS,INC./RIDGEFIELD-2012-AP-00762ZA

PATIENT
  Age: 25 Year
  Sex: Female
  Weight: 60 kg

DRUGS (3)
  1. PRADAXA [Suspect]
     Indication: PULMONARY EMBOLISM
     Dosage: 220 mg
     Route: 048
     Dates: start: 20120711, end: 20120831
  2. YAZ [Concomitant]
     Indication: ORAL CONTRACEPTION
     Dosage: 1 tablet
     Route: 048
     Dates: end: 201207
  3. TETRALYSAL [Concomitant]
     Indication: ACNE

REACTIONS (2)
  - Embolism [Not Recovered/Not Resolved]
  - Chest discomfort [Recovered/Resolved]
